FAERS Safety Report 4615698-2 (Version None)
Quarter: 2005Q1

REPORT INFORMATION
  Report Type: 
  Country: None (occurrence: None)
  Receive Date: 20050317
  Receipt Date: 20050310
  Transmission Date: 20050727
  Serious: Yes (Death)
  Sender: FDA-Public Use
  Company Number: 2004UW24644

PATIENT
  Age: 28 Year
  Sex: Male
  Weight: 87.9978 kg

DRUGS (4)
  1. SEROQUEL [Suspect]
     Dosage: 300 MG BID PO
     Route: 048
     Dates: start: 20031109
  2. PROZAC [Suspect]
     Dosage: 20 MG DAILY PO
     Route: 048
     Dates: start: 20031109
  3. KLONOPIN [Concomitant]
  4. SYNTHROID [Concomitant]

REACTIONS (1)
  - MULTIPLE DRUG OVERDOSE [None]
